FAERS Safety Report 9401626 (Version 4)
Quarter: 2014Q2

REPORT INFORMATION
  Report Type: Spontaneous
  Country: US (occurrence: US)
  Receive Date: 20130716
  Receipt Date: 20140410
  Transmission Date: 20141212
  Serious: Yes (Hospitalization, Other)
  Sender: FDA-Public Use
  Company Number: US-BIOGENIDEC-2013BI063199

PATIENT
  Sex: Female

DRUGS (4)
  1. AVONEX [Suspect]
     Indication: MULTIPLE SCLEROSIS
     Route: 030
  2. AVONEX [Suspect]
     Indication: MULTIPLE SCLEROSIS
     Route: 030
     Dates: start: 19970128, end: 200308
  3. AVONEX [Suspect]
     Indication: MULTIPLE SCLEROSIS
     Route: 030
     Dates: start: 200308, end: 2013
  4. AVONEX [Suspect]
     Indication: MULTIPLE SCLEROSIS
     Route: 030
     Dates: start: 2013

REACTIONS (13)
  - Arthropathy [Recovered/Resolved]
  - Intervertebral disc protrusion [Recovered/Resolved]
  - Mobility decreased [Recovered/Resolved]
  - Neck surgery [Unknown]
  - Macular degeneration [Recovered/Resolved]
  - Cataract [Recovered/Resolved]
  - Optic neuritis [Recovered/Resolved]
  - Stress [Unknown]
  - Mental impairment [Recovered/Resolved]
  - Ear pain [Recovered/Resolved]
  - Device extrusion [Not Recovered/Not Resolved]
  - Multiple sclerosis relapse [Recovered/Resolved]
  - Headache [Recovered/Resolved]
